FAERS Safety Report 16783026 (Version 1)
Quarter: 2019Q3

REPORT INFORMATION
  Report Type: Spontaneous
  Country: US (occurrence: US)
  Receive Date: 20190906
  Receipt Date: 20190906
  Transmission Date: 20191005
  Serious: Yes (Death, Other)
  Sender: FDA-Public Use
  Company Number: PHHY2019US204583

PATIENT
  Age: 70 Year
  Sex: Male

DRUGS (3)
  1. INSULIN [Concomitant]
     Active Substance: INSULIN NOS
     Indication: DIABETES MELLITUS
     Dosage: UNK
     Route: 065
  2. PREDNISONE. [Suspect]
     Active Substance: PREDNISONE
     Indication: IMMUNE-MEDIATED NECROTISING MYOPATHY
     Dosage: 20 MG, BID
     Route: 065
  3. METHOTREXATE. [Suspect]
     Active Substance: METHOTREXATE
     Indication: IMMUNE-MEDIATED NECROTISING MYOPATHY
     Dosage: 7.5 MG, QW
     Route: 065

REACTIONS (17)
  - Lethargy [Fatal]
  - Klebsiella infection [Unknown]
  - Cardio-respiratory arrest [Unknown]
  - Product use in unapproved indication [Unknown]
  - Cough [Fatal]
  - Pyrexia [Fatal]
  - Hypoxia [Unknown]
  - Strongyloidiasis [Fatal]
  - Acute respiratory distress syndrome [Fatal]
  - Eosinophilia [Fatal]
  - Respiratory failure [Unknown]
  - Diarrhoea [Fatal]
  - Tachypnoea [Unknown]
  - Oral candidiasis [Unknown]
  - Leukopenia [Fatal]
  - Tachycardia [Unknown]
  - Speech disorder [Unknown]
